FAERS Safety Report 18626636 (Version 1)
Quarter: 2020Q4

REPORT INFORMATION
  Report Type: Spontaneous
  Country: US (occurrence: US)
  Receive Date: 20201217
  Receipt Date: 20201217
  Transmission Date: 20210114
  Serious: Yes (Other)
  Sender: FDA-Public Use
  Company Number: US-CURIUM-200400166

PATIENT
  Age: 70 Year
  Sex: Male

DRUGS (3)
  1. TECHNESCAN MAG3 [Suspect]
     Active Substance: TECHNETIUM TC-99M TIATIDE
     Indication: RENAL SCAN
     Route: 065
     Dates: start: 20040517, end: 20040517
  2. MORPHINE [Concomitant]
     Active Substance: MORPHINE
     Dates: start: 20040517, end: 20040517
  3. LASIX [Concomitant]
     Active Substance: FUROSEMIDE
     Dosage: NUMBER OF SEPARATE DOSAGES: 1
     Dates: start: 20040517, end: 20040517

REACTIONS (4)
  - Rash [Recovered/Resolved]
  - Urinary incontinence [Recovered/Resolved]
  - Pharyngeal swelling [Recovered/Resolved]
  - Dyspnoea [Recovered/Resolved]

NARRATIVE: CASE EVENT DATE: 20040517
